FAERS Safety Report 20333849 (Version 3)
Quarter: 2022Q2

REPORT INFORMATION
  Report Type: Report from Study
  Country: JP (occurrence: JP)
  Receive Date: 20220113
  Receipt Date: 20220414
  Transmission Date: 20220721
  Serious: Yes (Hospitalization)
  Sender: FDA-Public Use
  Company Number: JP-PFIZER INC-202200016062

PATIENT
  Age: 82 Year
  Sex: Male
  Weight: 46.8 kg

DRUGS (22)
  1. BOSUTINIB [Suspect]
     Active Substance: BOSUTINIB
     Indication: Chronic myeloid leukaemia
     Dosage: 100 MG, 1X/DAY
     Route: 048
     Dates: start: 20210903, end: 20210908
  2. BOSUTINIB [Suspect]
     Active Substance: BOSUTINIB
     Dosage: 200 MG, 1X/DAY
     Route: 048
     Dates: start: 20210909, end: 20210915
  3. BOSUTINIB [Suspect]
     Active Substance: BOSUTINIB
     Dosage: 300 MG, 1X/DAY
     Route: 048
     Dates: start: 20210916, end: 20210923
  4. BOSUTINIB [Suspect]
     Active Substance: BOSUTINIB
     Dosage: 200 MG, 1X/DAY
     Route: 048
     Dates: start: 20211021, end: 20211125
  5. BOSUTINIB [Suspect]
     Active Substance: BOSUTINIB
     Dosage: 200 MG, 1X/DAY
     Route: 048
     Dates: start: 20211209
  6. CARVEDILOL [Concomitant]
     Active Substance: CARVEDILOL
     Indication: Myocardial ischaemia
     Dosage: UNK
     Route: 048
  7. XARELTO [Concomitant]
     Active Substance: RIVAROXABAN
     Indication: Myocardial ischaemia
     Dosage: UNK
     Route: 048
  8. CLOPIDOGREL [Concomitant]
     Active Substance: CLOPIDOGREL BISULFATE
     Indication: Myocardial ischaemia
     Dosage: UNK
     Route: 048
  9. TORSEMIDE [Concomitant]
     Active Substance: TORSEMIDE
     Indication: Myocardial ischaemia
     Dosage: UNK
     Route: 048
  10. FUROSEMIDE [Concomitant]
     Active Substance: FUROSEMIDE
     Indication: Myocardial ischaemia
     Dosage: UNK
     Route: 048
  11. ENALAPRIL MALEATE [Concomitant]
     Active Substance: ENALAPRIL MALEATE
     Indication: Myocardial ischaemia
     Dosage: UNK
     Route: 048
  12. DILTIAZEM HYDROCHLORIDE [Concomitant]
     Active Substance: DILTIAZEM HYDROCHLORIDE
     Indication: Myocardial ischaemia
     Dosage: UNK
     Route: 048
  13. PRAVASTATIN SODIUM [Concomitant]
     Active Substance: PRAVASTATIN SODIUM
     Indication: Myocardial ischaemia
     Dosage: UNK
     Route: 048
  14. METFORMIN HYDROCHLORIDE [Concomitant]
     Active Substance: METFORMIN HYDROCHLORIDE
     Indication: Type 2 diabetes mellitus
     Dosage: UNK
     Route: 048
  15. PANCRELIPASE [Concomitant]
     Active Substance: PANCRELIPASE
     Indication: Intraductal papillary mucinous neoplasm
     Dosage: UNK
     Route: 048
  16. FEBUXOSTAT [Concomitant]
     Active Substance: FEBUXOSTAT
     Indication: Prophylaxis
     Dosage: UNK
     Route: 048
     Dates: start: 20210903
  17. FAMOTIDINE [Concomitant]
     Active Substance: FAMOTIDINE
     Indication: Prophylaxis
     Dosage: UNK
     Route: 048
  18. SAMSCA [Concomitant]
     Active Substance: TOLVAPTAN
     Indication: Myocardial ischaemia
     Dosage: UNK
     Route: 048
  19. RABEPRAZOLE SODIUM [Concomitant]
     Active Substance: RABEPRAZOLE SODIUM
     Indication: Prophylaxis against gastrointestinal ulcer
     Dosage: UNK
     Route: 048
  20. JANUVIA [Concomitant]
     Active Substance: SITAGLIPTIN PHOSPHATE
     Indication: Diabetes mellitus
     Dosage: UNK
     Route: 048
  21. BROMHEXINE [Concomitant]
     Active Substance: BROMHEXINE
     Indication: Pneumonia staphylococcal
     Dosage: UNK
     Route: 048
  22. LAGNOS NF [Concomitant]
     Indication: Constipation
     Dosage: UNK
     Route: 048

REACTIONS (3)
  - Pneumonia [Recovered/Resolved]
  - Cholecystitis [Recovering/Resolving]
  - Pneumonia staphylococcal [Recovering/Resolving]

NARRATIVE: CASE EVENT DATE: 20210924
